FAERS Safety Report 21652994 (Version 2)
Quarter: 2022Q4

REPORT INFORMATION
  Report Type: Spontaneous
  Country: JP (occurrence: JP)
  Receive Date: 20221128
  Receipt Date: 20221206
  Transmission Date: 20230113
  Serious: Yes (Hospitalization, Other)
  Sender: FDA-Public Use
  Company Number: JP-Merck Healthcare KGaA-9366675

PATIENT
  Age: 76 Year
  Sex: Male

DRUGS (2)
  1. ERBITUX [Suspect]
     Active Substance: CETUXIMAB
     Indication: Hypopharyngeal cancer
     Dosage: 400 MG, WEEKLY (1/W)
     Route: 041
     Dates: start: 20221108, end: 20221108
  2. PACLITAXEL [Suspect]
     Active Substance: PACLITAXEL
     Indication: Hypopharyngeal cancer
     Dosage: 1 DOSAGE FORM, WEEKLY (1/W)
     Route: 041
     Dates: start: 20221108, end: 20221108

REACTIONS (1)
  - Myelosuppression [Recovering/Resolving]

NARRATIVE: CASE EVENT DATE: 20221110
